FAERS Safety Report 9220823 (Version 1)
Quarter: 2013Q2

REPORT INFORMATION
  Report Type: Spontaneous
  Country: US (occurrence: US)
  Receive Date: 20130409
  Receipt Date: 20130409
  Transmission Date: 20140414
  Serious: No
  Sender: FDA-Public Use
  Company Number: US-UPSHER-SMITH LABORATORIES, INC.-13000319

PATIENT
  Age: 78 Year
  Sex: Male

DRUGS (8)
  1. PREVALITE [Suspect]
     Indication: DIARRHOEA
     Dosage: 2 G, QD
     Route: 048
     Dates: start: 20130123, end: 20130124
  2. PREVALITE [Suspect]
     Dosage: 4 G, QD
     Route: 048
     Dates: start: 20130125, end: 20130201
  3. PLAVIX                             /01220701/ [Concomitant]
     Dosage: UNK
  4. CLONIDINE [Concomitant]
     Indication: HYPERTENSION
     Dosage: 0.1 MG, BID
     Route: 048
     Dates: end: 20130131
  5. CLONIDINE [Concomitant]
     Dosage: 0.2 MG, BID
     Route: 048
     Dates: start: 20130201
  6. CARVEDILOL [Concomitant]
     Indication: HYPERTENSION
     Dosage: UNK
  7. COQ10 [Concomitant]
     Dosage: UNK
  8. POTASSIUM [Concomitant]
     Dosage: UNK

REACTIONS (7)
  - Hypoaesthesia [Recovered/Resolved]
  - Blood pressure increased [Recovering/Resolving]
  - Tinnitus [Recovered/Resolved]
  - Photopsia [Recovered/Resolved]
  - Xanthopsia [Recovered/Resolved]
  - Oscillopsia [Recovered/Resolved]
  - Balance disorder [Recovered/Resolved]
